FAERS Safety Report 19377266 (Version 1)
Quarter: 2021Q2

REPORT INFORMATION
  Report Type: Report from Study
  Country: BR (occurrence: BR)
  Receive Date: 20210604
  Receipt Date: 20210604
  Transmission Date: 20210717
  Serious: Yes (Hospitalization)
  Sender: FDA-Public Use
  Company Number: BR-TOPROL-2021000111

PATIENT
  Age: 54 Year
  Sex: Female

DRUGS (2)
  1. SELOZOK [Suspect]
     Active Substance: METOPROLOL SUCCINATE
     Route: 048
  2. ATACAND HCT [Suspect]
     Active Substance: CANDESARTAN CILEXETIL\HYDROCHLOROTHIAZIDE
     Dosage: 16/12.5 MG
     Route: 048
     Dates: start: 1999

REACTIONS (3)
  - Drug hypersensitivity [Unknown]
  - Dizziness [Unknown]
  - Blood pressure abnormal [Unknown]
